FAERS Safety Report 12850367 (Version 1)
Quarter: 2016Q4

REPORT INFORMATION
  Report Type: Spontaneous
  Country: FR (occurrence: FR)
  Receive Date: 20161014
  Receipt Date: 20161014
  Transmission Date: 20170207
  Serious: Yes (Other)
  Sender: FDA-Public Use
  Company Number: FR-TEVA-700336ROM

PATIENT
  Sex: Male

DRUGS (2)
  1. DEPOCYTE [Concomitant]
     Active Substance: CYTARABINE
     Indication: ACUTE MYELOID LEUKAEMIA
     Dosage: CHEMOTHERAPY
  2. TRISENOX [Suspect]
     Active Substance: ARSENIC TRIOXIDE
     Indication: ACUTE MYELOID LEUKAEMIA

REACTIONS (2)
  - Myelitis [Not Recovered/Not Resolved]
  - Nervous system disorder [Not Recovered/Not Resolved]
